FAERS Safety Report 7647240-6 (Version None)
Quarter: 2011Q3

REPORT INFORMATION
  Report Type: 
  Country: None (occurrence: None)
  Receive Date: 20110801
  Receipt Date: 20100324
  Transmission Date: 20111222
  Serious: No
  Sender: FDA-Public Use
  Company Number: US-BAYER-201017457NA

PATIENT
  Age: 75 Year
  Sex: Female

DRUGS (4)
  1. AVELOX [Suspect]
     Indication: SINUSITIS
     Dosage: 400 MG, QD
     Dates: start: 20100324
  2. ASPIRIN [Concomitant]
     Dosage: 81 MG, QD
  3. XANAX [Concomitant]
  4. THYROID TAB [Concomitant]

REACTIONS (1)
  - TINNITUS [None]
